FAERS Safety Report 6741521-6 (Version None)
Quarter: 2010Q2

REPORT INFORMATION
  Report Type: 
  Country: None (occurrence: None)
  Receive Date: 20100526
  Receipt Date: 20100514
  Transmission Date: 20101027
  Serious: Yes (Hospitalization)
  Sender: FDA-Public Use
  Company Number: BR-ABBOTT-10P-020-0645006-00

PATIENT
  Sex: Female
  Weight: 63 kg

DRUGS (6)
  1. HUMIRA [Suspect]
     Indication: RHEUMATOID ARTHRITIS
     Route: 058
  2. HYDROCHLOROTHIAZIDE [Concomitant]
     Indication: HYPERTENSION
     Route: 048
  3. POTASSIUM LOSARTAN [Concomitant]
     Indication: HYPERTENSION
     Route: 048
  4. SULFASALAZINE [Concomitant]
     Indication: MUSCULOSKELETAL PAIN
     Route: 048
  5. REUQUINOL [Concomitant]
     Indication: MUSCULOSKELETAL PAIN
     Route: 048
  6. BUSSOMIDA [Concomitant]
     Indication: LUNG DISORDER
     Route: 048

REACTIONS (5)
  - BREAST DISORDER [None]
  - DYSPNOEA [None]
  - HAEMOPTYSIS [None]
  - HYPERTENSION [None]
  - LUNG DISORDER [None]
